FAERS Safety Report 19445154 (Version 1)
Quarter: 2021Q2

REPORT INFORMATION
  Report Type: Spontaneous
  Country: GB (occurrence: GB)
  Receive Date: 20210622
  Receipt Date: 20210622
  Transmission Date: 20210717
  Serious: Yes (Other)
  Sender: FDA-Public Use
  Company Number: GB-AUROBINDO-AUR-APL-2021-024942

PATIENT
  Age: 54 Year
  Sex: Male

DRUGS (199)
  1. AMOXICILLIN. [Suspect]
     Active Substance: AMOXICILLIN
     Dosage: 3 G, 1X/DAY
     Route: 042
     Dates: start: 20060913
  2. SIMVASTATIN FILM?COATED TABLET [Suspect]
     Active Substance: SIMVASTATIN
     Indication: PNEUMONIA
     Dosage: 40 MILLIGRAM, ONCE A DAY, 40 MILLIGRAM, QD
     Route: 042
     Dates: start: 2006
  3. AQUASEPT [Suspect]
     Active Substance: TRICLOSAN
     Indication: PNEUMONIA
  4. ALFENTANIL. [Suspect]
     Active Substance: ALFENTANIL
     Indication: PNEUMONIA
     Dosage: DAILY DOSE: UNKNOWN
     Route: 042
     Dates: start: 2006
  5. ALFENTANIL. [Suspect]
     Active Substance: ALFENTANIL
     Indication: ILL-DEFINED DISORDER
     Dosage: DAILY DOSE: UNKNOWN
     Route: 042
     Dates: start: 2006
  6. CLEXANE [Suspect]
     Active Substance: ENOXAPARIN SODIUM
     Dosage: 20 MILLIGRAM(20 MG, QD)
     Route: 058
  7. FLUCONAZOLE. [Suspect]
     Active Substance: FLUCONAZOLE
     Indication: ILL-DEFINED DISORDER
     Dosage: 200 MILLIGRAM(200 MG, QD   )
     Route: 042
     Dates: start: 2006
  8. FLUCONAZOLE. [Suspect]
     Active Substance: FLUCONAZOLE
     Indication: PNEUMONIA
     Dosage: 200 MILLIGRAM, ONCE A DAY(200 MILLIGRAM, QD   )
     Route: 042
     Dates: start: 2006
  9. LANSOPRAZOLE. [Suspect]
     Active Substance: LANSOPRAZOLE
     Indication: ILL-DEFINED DISORDER
     Dosage: DAILY DOSE: 30 MILLIGRAM(S)
     Route: 065
     Dates: start: 2006
  10. LORAZEPAM. [Suspect]
     Active Substance: LORAZEPAM
     Dosage: UNK
     Route: 065
  11. PIRITON [Suspect]
     Active Substance: CHLORPHENIRAMINE MALEATE
     Dosage: 10 MG, QID
     Route: 065
  12. POTASSIUM CANRENOATE [Suspect]
     Active Substance: CANRENOATE POTASSIUM
     Indication: ILL-DEFINED DISORDER
     Dosage: UNK
     Route: 065
  13. POTASSIUM CHLORIDE. [Suspect]
     Active Substance: POTASSIUM CHLORIDE
     Indication: PNEUMONIA
     Dosage: UNK, TID (0.33 DAY)
     Route: 065
  14. POTASSIUM CHLORIDE. [Suspect]
     Active Substance: POTASSIUM CHLORIDE
     Dosage: 2 DF, TID
     Route: 065
     Dates: start: 2006
  15. POTASSIUM PHOSPHATE [Suspect]
     Active Substance: POTASSIUM PHOSPHATE
     Indication: ILL-DEFINED DISORDER
     Dosage: DAILY DOSE: UNKNOWN
     Route: 065
     Dates: start: 2006
  16. PROPOFOL. [Suspect]
     Active Substance: PROPOFOL
     Dosage: DAILY DOSE: UNKNOWN
     Route: 065
     Dates: start: 2006
  17. ROCEPHIN [Suspect]
     Active Substance: CEFTRIAXONE SODIUM
     Indication: PNEUMONIA
     Dosage: DAILY DOSE TEXT: 2 G
     Route: 042
     Dates: start: 2006
  18. SANDO K (POTASSIUM BICARBONATE\POTASSIUM CHLORIDE) [Suspect]
     Active Substance: POTASSIUM BICARBONATE\POTASSIUM CHLORIDE
     Dosage: 2 DF,TID (DAILY DOSE: 6 DOSAGE FORM, 2 DF, TID)
     Route: 061
     Dates: start: 2006
  19. SANDO K (POTASSIUM BICARBONATE\POTASSIUM CHLORIDE) [Suspect]
     Active Substance: POTASSIUM BICARBONATE\POTASSIUM CHLORIDE
     Dosage: 2 DOSAGE FORM, TID
     Route: 061
  20. SODIUM HYDROGEN CARBONATE [Suspect]
     Active Substance: SODIUM BICARBONATE
     Indication: PRODUCT USED FOR UNKNOWN INDICATION
     Dosage: 100 ML HOURLY
     Route: 042
  21. SALBUTAMOL [Suspect]
     Active Substance: ALBUTEROL
     Indication: ILL-DEFINED DISORDER
     Dosage: UNK
     Route: 065
     Dates: start: 2006
  22. SODIUM CHLORIDE. [Suspect]
     Active Substance: SODIUM CHLORIDE
     Indication: PNEUMONIA
     Dosage: UNK
     Route: 065
  23. SODIUM CHLORIDE. [Suspect]
     Active Substance: SODIUM CHLORIDE
     Indication: PNEUMONIA
     Dosage: 0.9 PER CENT SOLUTION
     Route: 042
  24. ZOTON [Suspect]
     Active Substance: LANSOPRAZOLE
     Indication: PNEUMONIA
     Dosage: 30 MILLIGRAM
     Route: 065
  25. CO?AMOXICLAV [Concomitant]
     Active Substance: AMOXICILLIN\CLAVULANATE POTASSIUM
     Dosage: 250 MILLIGRAM(250 MILLIGRAM)
     Route: 048
  26. IPRATROPIUM BROMIDE. [Concomitant]
     Active Substance: IPRATROPIUM BROMIDE
     Indication: PRODUCT USED FOR UNKNOWN INDICATION
     Dosage: UNK
     Route: 065
  27. METOCLOPRAMIDE. [Concomitant]
     Active Substance: METOCLOPRAMIDE
     Indication: ILL-DEFINED DISORDER
     Dosage: DAILY DOSE: 10 MILLIGRAM(S)
     Route: 042
  28. TAZOCIN [Concomitant]
     Active Substance: PIPERACILLIN SODIUM\TAZOBACTAM SODIUM
     Dosage: INCREASED TO 4 TIMES DAILY BETWEEN 04/10/2006 AND 09/10/2006
     Route: 042
  29. TAZOCIN [Concomitant]
     Active Substance: PIPERACILLIN SODIUM\TAZOBACTAM SODIUM
     Dosage: 4.5 GRAM, TID
     Route: 065
     Dates: start: 20061009
  30. TAZOCIN [Concomitant]
     Active Substance: PIPERACILLIN SODIUM\TAZOBACTAM SODIUM
     Dosage: 4.5 G (INCREASED TO 4 TIMES DAILY)
     Route: 065
     Dates: start: 20061004, end: 20061009
  31. CEFTRIAXONE. [Suspect]
     Active Substance: CEFTRIAXONE
     Indication: ILL-DEFINED DISORDER
     Dosage: POWDER FOR SOLUTION FOR INJECTION OR INFUSION
     Route: 042
     Dates: start: 2006
  32. CALCIUM CHLORIDE. [Suspect]
     Active Substance: CALCIUM CHLORIDE
     Indication: PNEUMONIA
     Dosage: DAILY DOSE: UNKNOWN
     Route: 065
     Dates: start: 2006
  33. HUMAN ACTRAPID [Suspect]
     Active Substance: INSULIN HUMAN
     Indication: DIABETES MELLITUS
     Dosage: UNK
     Route: 042
  34. HUMAN ACTRAPID [Suspect]
     Active Substance: INSULIN HUMAN
     Indication: TOXIC EPIDERMAL NECROLYSIS
     Dosage: UNK (50 UNITS/50ML)
     Route: 042
  35. HUMAN ACTRAPID [Suspect]
     Active Substance: INSULIN HUMAN
     Indication: PNEUMONIA
     Dosage: UNK
     Route: 042
     Dates: start: 2006
  36. HUMAN ACTRAPID [Suspect]
     Active Substance: INSULIN HUMAN
     Dosage: 50 UNITS/50ML
     Route: 042
  37. LANSOPRAZOLE. [Suspect]
     Active Substance: LANSOPRAZOLE
     Indication: PNEUMONIA
     Dosage: 30 MG, QD
     Route: 065
  38. NOREPINEPHRINE. [Suspect]
     Active Substance: NOREPINEPHRINE
     Indication: ILL-DEFINED DISORDER
     Dosage: UNKNOWN
     Route: 065
     Dates: start: 2006
  39. OMEPRAZOLE. [Suspect]
     Active Substance: OMEPRAZOLE
     Indication: PNEUMONIA
     Dosage: 40 MG,UNK (DAILY DOSE: 40 MILLIGRAM(S))
     Route: 042
  40. POTASSIUM CHLORIDE. [Suspect]
     Active Substance: POTASSIUM CHLORIDE
     Indication: ILL-DEFINED DISORDER
     Dosage: 40MMOLS/100ML INFUSION
     Route: 065
  41. POTASSIUM CHLORIDE. [Suspect]
     Active Substance: POTASSIUM CHLORIDE
     Dosage: TID, 40MMOLS/100ML INFUSION
     Route: 065
  42. SANDO K (POTASSIUM BICARBONATE\POTASSIUM CHLORIDE) [Suspect]
     Active Substance: POTASSIUM BICARBONATE\POTASSIUM CHLORIDE
     Dosage: 2 DOSAGE FORM, Q8H (DAILY DOSE TEXT: 2 DL 3/1DAYS)
     Route: 065
  43. ATROVENT [Concomitant]
     Active Substance: IPRATROPIUM BROMIDE
     Indication: ILL-DEFINED DISORDER
     Dosage: DAILY DOSE TEXT: AS NECESSARY (NEBULISER)
     Route: 048
  44. ATROVENT [Concomitant]
     Active Substance: IPRATROPIUM BROMIDE
     Dosage: UNK UNK, PRN
     Route: 065
  45. ERYTHROMYCIN. [Concomitant]
     Active Substance: ERYTHROMYCIN
     Indication: ILL-DEFINED DISORDER
     Dosage: DAILY DOSE: 250 MILLIGRAM(S)
     Route: 065
  46. MIDODRINE [Concomitant]
     Active Substance: MIDODRINE
     Dosage: UNK
     Route: 065
  47. TAZOCIN [Concomitant]
     Active Substance: PIPERACILLIN SODIUM\TAZOBACTAM SODIUM
     Dosage: INCREASED TO 4 TIMES DAILY BETWEEN 04/10/2006 AND 09/10/2006
     Route: 042
  48. VANCOMYCIN [Concomitant]
     Active Substance: VANCOMYCIN
     Dosage: 1 G, QD
     Route: 065
  49. CITRIC ACID ANHYDROUS [Suspect]
     Active Substance: ANHYDROUS CITRIC ACID
     Indication: ILL-DEFINED DISORDER
     Dosage: 100 MG, QD
     Route: 065
     Dates: start: 2006
  50. BACTROBAN [Suspect]
     Active Substance: MUPIROCIN\MUPIROCIN CALCIUM
     Indication: ILL-DEFINED DISORDER
     Dosage: 10ML/50% 8MMOLS/50MLS
     Route: 065
     Dates: start: 2006
  51. CLEXANE [Suspect]
     Active Substance: ENOXAPARIN SODIUM
     Indication: ILL-DEFINED DISORDER
     Dosage: DAILY DOSE: 20 MILLIGRAM(S)
     Route: 065
     Dates: start: 2006
  52. CALCIUM CHLORIDE. [Suspect]
     Active Substance: CALCIUM CHLORIDE
     Indication: ILL-DEFINED DISORDER
     Dosage: UNK
     Route: 065
  53. CALCIUM GLUCONATE. [Suspect]
     Active Substance: CALCIUM GLUCONATE
     Indication: ILL-DEFINED DISORDER
     Dosage: 10 MILLILITER
     Route: 065
  54. HYDROCORTISONE. [Suspect]
     Active Substance: HYDROCORTISONE
     Dosage: 100 MG, TOTAL
     Route: 065
  55. HYDROCORTISONE. [Suspect]
     Active Substance: HYDROCORTISONE
     Indication: PRODUCT USED FOR UNKNOWN INDICATION
     Dosage: 100 MILLIGRAM
     Route: 065
  56. LACTULOSE. [Suspect]
     Active Substance: LACTULOSE
     Indication: ILL-DEFINED DISORDER
     Dosage: DAILY DOSE: 10 MILLILITRE(S)
     Route: 065
     Dates: start: 2006
  57. LORAZEPAM. [Suspect]
     Active Substance: LORAZEPAM
     Indication: ILL-DEFINED DISORDER
     Dosage: 1?2MG ONCE ONLY
     Route: 065
  58. MAGNESIUM SULPHATE [Suspect]
     Active Substance: MAGNESIUM SULFATE
     Indication: PRODUCT USED FOR UNKNOWN INDICATION
     Dosage: 10ML/50% 8MMOLS/50MLS
     Route: 061
     Dates: start: 2006
  59. POTASSIUM CHLORIDE. [Suspect]
     Active Substance: POTASSIUM CHLORIDE
     Dosage: 2 DOSAGE FORM(2 DF, Q8H)
     Route: 065
  60. SODIUM BICARBONATE. [Suspect]
     Active Substance: SODIUM BICARBONATE
     Indication: PNEUMONIA
     Dosage: 100 MG,BIWEEKLY
     Route: 042
  61. TINZAPARIN [Suspect]
     Active Substance: TINZAPARIN
     Indication: ILL-DEFINED DISORDER
     Dosage: 3500 MICROLITER, QD
     Route: 065
  62. CIPROFLOXACIN. [Concomitant]
     Active Substance: CIPROFLOXACIN
     Indication: PRODUCT USED FOR UNKNOWN INDICATION
     Dosage: 400 MILLIGRAM, ONCE A DAY, DAILY DOSE: 400 MILLIGRAM(S)
     Route: 042
  63. MIDODRINE [Concomitant]
     Active Substance: MIDODRINE
     Indication: ILL-DEFINED DISORDER
     Dosage: DAILY DOSE: UNKNOWN
     Route: 048
  64. PANTOPRAZOLE [Concomitant]
     Active Substance: PANTOPRAZOLE
     Indication: ILL-DEFINED DISORDER
     Dosage: DAILY DOSE: 40 MILLIGRAM(S)
     Route: 042
  65. TRICLOSAN. [Concomitant]
     Active Substance: TRICLOSAN
     Indication: PRODUCT USED FOR UNKNOWN INDICATION
     Dosage: UNK
     Route: 065
  66. AMOXICILLIN. [Suspect]
     Active Substance: AMOXICILLIN
     Indication: PNEUMONIA
     Dosage: 250 MILLIGRAM, 3 TIMES A DAY, 250 MG, TID (750 MG)
     Route: 065
     Dates: start: 20060913
  67. AMOXICILLIN. [Suspect]
     Active Substance: AMOXICILLIN
     Dosage: 1 G, TID
     Route: 042
     Dates: start: 20060913
  68. FLUCONAZOLE. [Suspect]
     Active Substance: FLUCONAZOLE
     Indication: ILL-DEFINED DISORDER
     Dosage: 20 MILLIGRAM, QD
     Route: 042
  69. FUROSEMIDE. [Suspect]
     Active Substance: FUROSEMIDE
     Indication: ILL-DEFINED DISORDER
     Dosage: 40 MILLIGRAM, ONCE A DAY
     Route: 042
     Dates: start: 2006
  70. ALFENTANIL. [Suspect]
     Active Substance: ALFENTANIL
     Dosage: UNK
     Route: 042
  71. CHLORPHENAMINE [Suspect]
     Active Substance: CHLORPHENIRAMINE MALEATE
     Indication: PNEUMONIA
     Dosage: UNK
     Route: 065
     Dates: start: 2006
  72. DOBUTAMINE [Suspect]
     Active Substance: DOBUTAMINE HYDROCHLORIDE
     Indication: PNEUMONIA
     Dosage: UNK
     Route: 065
  73. DOBUTAMINE [Suspect]
     Active Substance: DOBUTAMINE HYDROCHLORIDE
     Indication: ILL-DEFINED DISORDER
     Dosage: UNKNOWN/D
     Route: 065
     Dates: start: 2006
  74. FRAGMIN [Suspect]
     Active Substance: DALTEPARIN SODIUM
     Indication: PRODUCT USED FOR UNKNOWN INDICATION
  75. HEPARIN CALCIUM [Suspect]
     Active Substance: HEPARIN CALCIUM
     Indication: ILL-DEFINED DISORDER
     Dosage: UNK
     Route: 065
  76. HEPARIN SODIUM. [Suspect]
     Active Substance: HEPARIN SODIUM
     Indication: PRODUCT USED FOR UNKNOWN INDICATION
     Dosage: 3500 MICROGRAM, QD
     Route: 065
  77. HUMAN ACTRAPID [Suspect]
     Active Substance: INSULIN HUMAN
     Dosage: UNK
     Route: 042
  78. HYDROCORTISONE. [Suspect]
     Active Substance: HYDROCORTISONE
     Dosage: 100 MILLIGRAM(100 MG, TOTAL)
     Route: 065
  79. HYDROCORTISONE. [Suspect]
     Active Substance: HYDROCORTISONE
     Indication: PNEUMONIA
     Dosage: 100 MG,UNK (DAILY DOSE TEXT: 100MG 1 TOTAL)
     Route: 042
  80. MUPIROCIN. [Suspect]
     Active Substance: MUPIROCIN
     Indication: ILL-DEFINED DISORDER
     Dosage: UNK
     Route: 065
     Dates: start: 2006
  81. MAGNESIUM SULPHATE [Suspect]
     Active Substance: MAGNESIUM SULFATE
     Dosage: UNK
     Route: 065
  82. MAGNESIUM SULFATE. [Suspect]
     Active Substance: MAGNESIUM SULFATE
     Indication: ILL-DEFINED DISORDER
     Dosage: 10ML/50%8MMOLS/50 MLS (INFUSION)
     Route: 065
     Dates: start: 2006
  83. OMEPRAZOLE. [Suspect]
     Active Substance: OMEPRAZOLE
     Indication: ILL-DEFINED DISORDER
     Dosage: DAILY DOSE: 40 MILLIGRAM(S)
     Route: 042
     Dates: start: 2006
  84. PHYTOMENADIONE [Suspect]
     Active Substance: PHYTONADIONE
     Indication: ILL-DEFINED DISORDER
     Dosage: UNK
     Route: 065
     Dates: start: 2006
  85. POTASSIUM PHOSPHATE [Suspect]
     Active Substance: POTASSIUM PHOSPHATE
     Indication: PNEUMONIA
     Dosage: UNK
     Route: 065
  86. PROPOFOL. [Suspect]
     Active Substance: PROPOFOL
     Indication: PRODUCT USED FOR UNKNOWN INDICATION
     Dosage: UNK
     Route: 065
  87. SALBUTAMOL [Suspect]
     Active Substance: ALBUTEROL
     Dosage: UNK UNK, PRN
     Route: 065
     Dates: start: 2006
  88. THIAMIN [Suspect]
     Active Substance: THIAMINE
     Indication: PNEUMONIA
     Dosage: 100 MILLIGRAM, QD
     Route: 048
  89. ATROVENT [Concomitant]
     Active Substance: IPRATROPIUM BROMIDE
     Dosage: UNK
     Route: 065
  90. CO?AMOXICLAV [Concomitant]
     Active Substance: AMOXICILLIN\CLAVULANATE POTASSIUM
     Indication: PRODUCT USED FOR UNKNOWN INDICATION
     Dosage: 375 MILLIGRAM, TID
     Route: 065
     Dates: start: 20060913
  91. TAZOCIN [Concomitant]
     Active Substance: PIPERACILLIN SODIUM\TAZOBACTAM SODIUM
     Indication: ILL-DEFINED DISORDER
     Dosage: 4.5 MG, QID
     Route: 065
     Dates: start: 2006
  92. VANCOMYCIN [Concomitant]
     Active Substance: VANCOMYCIN
     Indication: ILL-DEFINED DISORDER
     Dosage: 1 GRAM, ONCE A DAY, DAILY DOSE TEXT: 1G 1/1DAYS
     Route: 042
  93. PARACETAMOL [Suspect]
     Active Substance: ACETAMINOPHEN
     Dosage: UNK
     Route: 065
  94. FUROSEMIDE. [Suspect]
     Active Substance: FUROSEMIDE
     Dosage: 20 MG BID
     Route: 042
     Dates: start: 2006
  95. FUROSEMIDE. [Suspect]
     Active Substance: FUROSEMIDE
     Dosage: UNK
     Route: 065
  96. ENOXAPARIN [Suspect]
     Active Substance: ENOXAPARIN
     Indication: PRODUCT USED FOR UNKNOWN INDICATION
     Dosage: 20 MILLIGRAM, QD
     Route: 065
  97. FRAGMIN [Suspect]
     Active Substance: DALTEPARIN SODIUM
     Indication: ILL-DEFINED DISORDER
     Dosage: DAILY DOSE: 2500 INTERNATIONAL UNITS, 2500 IU, QD
     Route: 058
     Dates: start: 2006
  98. HYDROCORTISONE. [Suspect]
     Active Substance: HYDROCORTISONE
     Indication: PNEUMONIA
     Dosage: 100 MILLIGRAM
     Route: 065
  99. HYDROCORTISONE. [Suspect]
     Active Substance: HYDROCORTISONE
     Indication: PRODUCT USED FOR UNKNOWN INDICATION
     Dosage: 100 MILLIGRAM, QD
     Route: 065
  100. LACTULOSE. [Suspect]
     Active Substance: LACTULOSE
     Indication: PNEUMONIA
     Dosage: 10 MILLILITER
     Route: 065
  101. LACTULOSE. [Suspect]
     Active Substance: LACTULOSE
     Dosage: UNK
     Route: 065
  102. LORAZEPAM. [Suspect]
     Active Substance: LORAZEPAM
     Indication: PNEUMONIA
     Dosage: 1?2MG ONCE ONLY
     Route: 065
     Dates: start: 2006
  103. MAGNESIUM SULPHATE [Suspect]
     Active Substance: MAGNESIUM SULFATE
     Indication: PNEUMONIA
     Dosage: UNK
     Route: 065
  104. MAGNESIUM SULFATE. [Suspect]
     Active Substance: MAGNESIUM SULFATE
     Indication: PNEUMONIA
     Dosage: UNK
     Route: 065
  105. PIRITON [Suspect]
     Active Substance: CHLORPHENIRAMINE MALEATE
     Indication: PNEUMONIA
     Dosage: 10 MG,QID (DAILY DOSE: 40 MILLIGRAM(S), 10 MG, QID)
     Route: 042
     Dates: start: 2006
  106. POTASSIUM CHLORIDE. [Suspect]
     Active Substance: POTASSIUM CHLORIDE
     Dosage: UNK UNK, QD (40MMOLS/100ML INFUSION)
     Route: 065
     Dates: start: 2006
  107. SANDO K (POTASSIUM BICARBONATE\POTASSIUM CHLORIDE) [Suspect]
     Active Substance: POTASSIUM BICARBONATE\POTASSIUM CHLORIDE
     Indication: ILL-DEFINED DISORDER
     Dosage: 2 DOSAGE FORM, QD (DAILY DOSE TEXT: 2 DL 3/1DAYS)
     Route: 065
  108. SANDO K (POTASSIUM BICARBONATE\POTASSIUM CHLORIDE) [Suspect]
     Active Substance: POTASSIUM BICARBONATE\POTASSIUM CHLORIDE
     Dosage: 6 DOSAGE FORM, QD
     Route: 065
  109. SODIUM BICARBONATE. [Suspect]
     Active Substance: SODIUM BICARBONATE
     Dosage: 100 MILLIGRAM (ADMINISTRATION OVER AN HOUR)
     Route: 042
     Dates: start: 2006
  110. SULFADIAZINE. [Suspect]
     Active Substance: SULFADIAZINE
     Indication: PRODUCT USED FOR UNKNOWN INDICATION
     Dosage: UNK
     Route: 065
  111. SALBUTAMOL [Suspect]
     Active Substance: ALBUTEROL
     Dosage: AS NECESSARY
     Route: 065
     Dates: start: 2006
  112. SILVER SULPHADIAZINE [Suspect]
     Active Substance: SILVER SULFADIAZINE
     Indication: PNEUMONIA
     Dosage: UNK
     Route: 061
  113. TRICLOSAN. [Suspect]
     Active Substance: TRICLOSAN
     Dosage: UNK
     Route: 065
  114. THIAMIN [Suspect]
     Active Substance: THIAMINE
     Indication: ILL-DEFINED DISORDER
     Dosage: 100 MILLIGRAM, QD
     Route: 042
     Dates: start: 2006
  115. VITAMIN B [Suspect]
     Active Substance: VITAMIN B
     Indication: ILL-DEFINED DISORDER
     Dosage: UNK
     Route: 065
  116. VITAMIN K [Suspect]
     Active Substance: PHYTONADIONE
     Indication: ILL-DEFINED DISORDER
     Dosage: DAILY DOSE: UNKNOWN
     Route: 065
     Dates: start: 2006
  117. ATROVENT [Concomitant]
     Active Substance: IPRATROPIUM BROMIDE
     Indication: ILL-DEFINED DISORDER
     Dosage: DAILY DOSE TEXT: AS NECESSARY
     Route: 048
  118. ATROVENT [Concomitant]
     Active Substance: IPRATROPIUM BROMIDE
     Dosage: UNK
     Route: 065
  119. CIPROFLOXACIN. [Concomitant]
     Active Substance: CIPROFLOXACIN
     Indication: ILL-DEFINED DISORDER
  120. PANTOPRAZOLE [Concomitant]
     Active Substance: PANTOPRAZOLE
     Dosage: DAILY DOSE: 40 MILLIGRAM(S)
     Route: 067
  121. TAZOCIN [Concomitant]
     Active Substance: PIPERACILLIN SODIUM\TAZOBACTAM SODIUM
     Dosage: INCREASED TO 4 TIMES DAILY BETWEEN 04/10/2006 AND 09/10/2006
     Route: 065
  122. TAZOCIN [Concomitant]
     Active Substance: PIPERACILLIN SODIUM\TAZOBACTAM SODIUM
     Dosage: 4.5 MILLIGRAM, QD (INCREASED TO 4 TIMES DAILY BETWEEN 04/10/2006 AND 09/10/2006)
     Route: 042
     Dates: start: 2006
  123. AMOXICILLIN. [Suspect]
     Active Substance: AMOXICILLIN
     Dosage: 1 G, TID
     Route: 042
     Dates: start: 20060913
  124. FUROSEMIDE. [Suspect]
     Active Substance: FUROSEMIDE
     Dosage: 20 MILLIGRAM, ONCE A DAY
     Route: 042
  125. ALFENTANIL. [Suspect]
     Active Substance: ALFENTANIL
     Indication: ILL-DEFINED DISORDER
  126. CHLORPHENIRAMINE MALEATE. [Suspect]
     Active Substance: CHLORPHENIRAMINE MALEATE
     Indication: ILL-DEFINED DISORDER
     Dosage: 10 MILLIGRAM, Q6H, DAILY DOSE: 40 MILLIGRAM(S), 10 MG, QID
     Route: 042
     Dates: start: 2006
  127. CHLORPHENIRAMINE MALEATE. [Suspect]
     Active Substance: CHLORPHENIRAMINE MALEATE
     Indication: PNEUMONIA
     Dosage: 10 MILLIGRAM, QID
     Route: 042
  128. CALCIUM GLUCONATE. [Suspect]
     Active Substance: CALCIUM GLUCONATE
     Indication: PNEUMONIA
     Dosage: DAILY DOSE: 10 MILLILITRE(S)
     Route: 042
     Dates: start: 2006
  129. FRAGMIN [Suspect]
     Active Substance: DALTEPARIN SODIUM
     Indication: PNEUMONIA
     Dosage: 200 INTERNATIONAL UNIT, QD
     Route: 058
  130. HUMAN ACTRAPID [Suspect]
     Active Substance: INSULIN HUMAN
     Indication: PRODUCT USED FOR UNKNOWN INDICATION
     Dosage: 50 UNITS/50ML; DOSAGE FORM:SOLUTION FOR INJECTION
     Route: 042
     Dates: start: 2006
  131. HYDROCORTISONE. [Suspect]
     Active Substance: HYDROCORTISONE
     Indication: ILL-DEFINED DISORDER
     Dosage: 100 MILLIGRAM, ONCE A DAY
     Route: 042
     Dates: start: 2006
  132. HYDROCORTISONE. [Suspect]
     Active Substance: HYDROCORTISONE
     Dosage: 100 MG,UNK (DAILY DOSE TEXT: 100MG 1 TOTAL)
     Route: 042
     Dates: start: 2006
  133. LANSOPRAZOLE. [Suspect]
     Active Substance: LANSOPRAZOLE
     Dosage: 3 GRAM
     Route: 065
  134. NORADRENALINE [Suspect]
     Active Substance: NOREPINEPHRINE
     Indication: ILL-DEFINED DISORDER
     Dosage: UNK
     Route: 065
     Dates: start: 2006
  135. PIRITON [Suspect]
     Active Substance: CHLORPHENIRAMINE MALEATE
     Dosage: DAILY DOSE: 40 MILLIGRAM(S), 10 MG, QID
     Route: 042
     Dates: start: 2006
  136. POTASSIUM CHLORIDE. [Suspect]
     Active Substance: POTASSIUM CHLORIDE
     Dosage: UNK
  137. POTASSIUM CHLORIDE. [Suspect]
     Active Substance: POTASSIUM CHLORIDE
     Indication: PRODUCT USED FOR UNKNOWN INDICATION
     Dosage: 2 DF, QD
     Route: 065
  138. POTASSIUM CHLORIDE. [Suspect]
     Active Substance: POTASSIUM CHLORIDE
     Dosage: UNK, TID (0.33 DAY)
  139. POTASSIUM CHLORIDE. [Suspect]
     Active Substance: POTASSIUM CHLORIDE
     Dosage: UNK, QD
     Route: 065
     Dates: start: 2006
  140. PROPOFOL. [Suspect]
     Active Substance: PROPOFOL
     Indication: PRODUCT USED FOR UNKNOWN INDICATION
     Dosage: UNK
     Route: 065
     Dates: start: 2006
  141. SODIUM BICARBONATE. [Suspect]
     Active Substance: SODIUM BICARBONATE
     Indication: ILL-DEFINED DISORDER
     Dosage: DOSE: 100 MG 1 HOUR.
     Route: 042
     Dates: start: 2006
  142. SODIUM HYDROGEN CARBONATE [Suspect]
     Active Substance: SODIUM BICARBONATE
     Indication: ILL-DEFINED DISORDER
     Dosage: ADMINISTRATION OVER AN HOUR. 100ML/HR
     Route: 042
     Dates: start: 2006
  143. SULFADIAZINE. [Suspect]
     Active Substance: SULFADIAZINE
     Indication: ILL-DEFINED DISORDER
     Dosage: UNK
     Route: 061
  144. SALBUTAMOL [Suspect]
     Active Substance: ALBUTEROL
     Indication: PNEUMONIA
     Dosage: UNK, PRN
     Route: 065
  145. SODIUM CHLORIDE. [Suspect]
     Active Substance: SODIUM CHLORIDE
     Indication: ILL-DEFINED DISORDER
     Dosage: 0.9 %
     Route: 065
  146. SODIUM CHLORIDE. [Suspect]
     Active Substance: SODIUM CHLORIDE
     Dosage: 0.9 PER CENT SOLUTION
     Route: 042
     Dates: start: 2006
  147. THIAMIN [Suspect]
     Active Substance: THIAMINE
     Indication: PRODUCT USED FOR UNKNOWN INDICATION
     Dosage: 100 MILLIGRAM, QD
     Route: 048
     Dates: start: 2006
  148. TINZAPARIN [Suspect]
     Active Substance: TINZAPARIN
     Dosage: UNK
     Route: 065
  149. ZOTON [Suspect]
     Active Substance: LANSOPRAZOLE
     Indication: ILL-DEFINED DISORDER
     Dosage: 30 MG,UNK (DAILY DOSE: 30 MILLIGRAM(S))
     Route: 065
     Dates: start: 2006
  150. ACETYLSALICYLIC ACID [Concomitant]
     Active Substance: ASPIRIN
     Indication: PRODUCT USED FOR UNKNOWN INDICATION
     Dosage: UNKNOWN/D
     Route: 048
  151. ASPIRIN. [Concomitant]
     Active Substance: ASPIRIN
     Indication: PRODUCT USED FOR UNKNOWN INDICATION
     Dosage: UNK
     Route: 065
  152. AMOXICILLIN. [Concomitant]
     Active Substance: AMOXICILLIN
     Indication: PRODUCT USED FOR UNKNOWN INDICATION
     Dosage: DAILY DOSE: 250 MILLIGRAM(S)
     Route: 048
     Dates: start: 20060913
  153. CO?AMOXICLAV [Concomitant]
     Active Substance: AMOXICILLIN\CLAVULANATE POTASSIUM
     Dosage: 375 MILLIGRAM, Q8H (DAILY DOSE TEXT: 375MG 3/1DAYS), TID
     Route: 065
     Dates: start: 20060913
  154. TAZOCIN [Concomitant]
     Active Substance: PIPERACILLIN SODIUM\TAZOBACTAM SODIUM
     Dosage: 3.5 GRAM(13.5 G, QD (DAILY DOSE TEXT: 4.5G 3/1DAYS))
     Route: 065
  155. AMOXICILLIN. [Suspect]
     Active Substance: AMOXICILLIN
     Indication: ILL-DEFINED DISORDER
     Dosage: UNK
     Route: 065
  156. PARACETAMOL [Suspect]
     Active Substance: ACETAMINOPHEN
     Indication: PNEUMONIA
     Dosage: DAILY DOSE: UNKNOWN
     Route: 065
     Dates: start: 2006
  157. FLUCONAZOLE. [Suspect]
     Active Substance: FLUCONAZOLE
     Dosage: 200 MG, QD
     Route: 065
  158. FUROSEMIDE. [Suspect]
     Active Substance: FUROSEMIDE
     Indication: PNEUMONIA
     Dosage: 20 MG, 1X/DAY
     Route: 048
  159. AQUASEPT [Suspect]
     Active Substance: TRICLOSAN
     Indication: ILL-DEFINED DISORDER
     Dosage: UNK
     Route: 065
     Dates: start: 2006
  160. BACTROBAN [Suspect]
     Active Substance: MUPIROCIN\MUPIROCIN CALCIUM
     Indication: PNEUMONIA
     Dosage: UNKNOWN
     Route: 065
     Dates: start: 2006
  161. CLEXANE [Suspect]
     Active Substance: ENOXAPARIN SODIUM
     Indication: PNEUMONIA
     Dosage: 20 MG, QD
     Route: 065
  162. NORADRENALINE [Suspect]
     Active Substance: NOREPINEPHRINE
     Indication: PNEUMONIA
     Dosage: UNK
     Route: 065
  163. PIRITON [Suspect]
     Active Substance: CHLORPHENIRAMINE MALEATE
     Dosage: UNK
     Route: 065
  164. POTASSIUM CHLORIDE. [Suspect]
     Active Substance: POTASSIUM CHLORIDE
     Dosage: 2 DOSAGE FORM(2 DF, Q8H)
     Route: 065
  165. PROPOFOL. [Suspect]
     Active Substance: PROPOFOL
     Indication: PNEUMONIA
     Dosage: UNK
     Route: 065
  166. SANDO K (POTASSIUM BICARBONATE\POTASSIUM CHLORIDE) [Suspect]
     Active Substance: POTASSIUM BICARBONATE\POTASSIUM CHLORIDE
     Dosage: DAILY DOSE TEXT: 2 DL 3/1DAYS
     Route: 065
  167. SODIUM BICARBONATE. [Suspect]
     Active Substance: SODIUM BICARBONATE
     Dosage: 100 MILLIGRAM (ADMINISTRATION OVER AN HOUR)
     Route: 042
  168. TRICLOSAN. [Suspect]
     Active Substance: TRICLOSAN
     Indication: PRODUCT USED FOR UNKNOWN INDICATION
     Dosage: UNK
     Route: 065
     Dates: start: 2006
  169. TINZAPARIN [Suspect]
     Active Substance: TINZAPARIN
     Indication: PNEUMONIA
     Dosage: 3500 UG,QD (DAILY DOSE TEXT: 3500 MICROLITERS UNK
     Route: 065
     Dates: start: 2006
  170. TINZAPARIN [Suspect]
     Active Substance: TINZAPARIN
     Dosage: 3500 ?L,QD (DAILY DOSE TEXT: 3500 MICROLITERS UNK
     Route: 065
     Dates: start: 2006
  171. VITAMIN K [Suspect]
     Active Substance: PHYTONADIONE
     Indication: PNEUMONIA
     Dosage: UNK
     Route: 065
  172. ACETYLSALICYLIC ACID [Concomitant]
     Active Substance: ASPIRIN
     Dosage: UNK
     Route: 065
  173. AMOXICILLIN. [Concomitant]
     Active Substance: AMOXICILLIN
     Indication: ILL-DEFINED DISORDER
  174. ZOPICLONE [Concomitant]
     Active Substance: ZOPICLONE
     Indication: ILL-DEFINED DISORDER
     Dosage: DAILY DOSE: UNKNOWN
     Route: 048
  175. AMOXICILLIN. [Suspect]
     Active Substance: AMOXICILLIN
     Dosage: 1 GRAM, TID
     Route: 042
     Dates: start: 20060913
  176. PARACETAMOL [Suspect]
     Active Substance: ACETAMINOPHEN
     Indication: ILL-DEFINED DISORDER
     Dosage: 50 UNITS/50ML
     Route: 042
     Dates: start: 2006
  177. FLUCONAZOLE. [Suspect]
     Active Substance: FLUCONAZOLE
     Indication: PNEUMONIA
     Dosage: 200 MILLIGRAM, QD
     Route: 042
     Dates: start: 2006
  178. CITRIC ACID ANHYDROUS [Suspect]
     Active Substance: ANHYDROUS CITRIC ACID
     Indication: PRODUCT USED FOR UNKNOWN INDICATION
     Dosage: 100 MG, QD
     Route: 065
  179. CEFTRIAXONE. [Suspect]
     Active Substance: CEFTRIAXONE
     Indication: PNEUMONIA
     Dosage: 2 GRAM
     Route: 065
  180. CALCIUM GLUCONATE. [Suspect]
     Active Substance: CALCIUM GLUCONATE
     Dosage: UNKNOWN
     Route: 065
  181. DOBUTAMINE [Suspect]
     Active Substance: DOBUTAMINE HYDROCHLORIDE
     Indication: PRODUCT USED FOR UNKNOWN INDICATION
     Dosage: UNK
     Route: 065
  182. FLAMAZINE [Suspect]
     Active Substance: SILVER SULFADIAZINE
     Indication: ILL-DEFINED DISORDER
     Dosage: UNKNOWN/D
     Route: 061
     Dates: start: 2006
  183. MAGNESIUM SULPHATE [Suspect]
     Active Substance: MAGNESIUM SULFATE
     Indication: ILL-DEFINED DISORDER
     Dosage: 10ML/50% 8MMOLS/50MLS
     Route: 061
     Dates: start: 2006
  184. NOREPINEPHRINE. [Suspect]
     Active Substance: NOREPINEPHRINE
     Indication: PNEUMONIA
     Dosage: UNK
     Route: 065
  185. PIRITON [Suspect]
     Active Substance: CHLORPHENIRAMINE MALEATE
     Indication: ILL-DEFINED DISORDER
     Dosage: 10 MG
     Route: 065
  186. PIRITON [Suspect]
     Active Substance: CHLORPHENIRAMINE MALEATE
     Dosage: DAILY DOSE: 40 MILLIGRAM(S), 10 MG, QID
     Route: 042
     Dates: start: 2006
  187. POTASSIUM CHLORIDE. [Suspect]
     Active Substance: POTASSIUM CHLORIDE
     Dosage: UNK UNK, QD (40MMOLS/100ML INFUSION)
     Route: 065
     Dates: start: 2006
  188. PROPOFOL. [Suspect]
     Active Substance: PROPOFOL
     Indication: ILL-DEFINED DISORDER
     Dosage: UNK
     Route: 065
     Dates: start: 2006
  189. ROCEPHIN [Suspect]
     Active Substance: CEFTRIAXONE SODIUM
     Indication: ILL-DEFINED DISORDER
  190. SANDO K (POTASSIUM BICARBONATE\POTASSIUM CHLORIDE) [Suspect]
     Active Substance: POTASSIUM BICARBONATE\POTASSIUM CHLORIDE
     Dosage: UNK UNK, TID
     Route: 065
  191. SANDO K (POTASSIUM BICARBONATE\POTASSIUM CHLORIDE) [Suspect]
     Active Substance: POTASSIUM BICARBONATE\POTASSIUM CHLORIDE
     Dosage: 2 DOSAGE FORM, QD
     Route: 065
  192. SODIUM BICARBONATE. [Suspect]
     Active Substance: SODIUM BICARBONATE
     Indication: PNEUMONIA
     Dosage: 0.9 %
     Route: 042
  193. SALBUTAMOL [Suspect]
     Active Substance: ALBUTEROL
     Dosage: 1 DF, PRN
     Route: 065
  194. SALBUTAMOL [Suspect]
     Active Substance: ALBUTEROL
     Dosage: UNK , AS NECESSARY(NEBULISER, AS NECESSARY)
     Route: 065
  195. SILVER SULPHADIAZINE [Suspect]
     Active Substance: SILVER SULFADIAZINE
     Indication: ILL-DEFINED DISORDER
     Dosage: UNKNOWN/D
     Route: 061
     Dates: start: 2006
  196. TRICLOSAN. [Suspect]
     Active Substance: TRICLOSAN
     Dosage: UNK
     Route: 065
  197. ZOTON [Suspect]
     Active Substance: LANSOPRAZOLE
     Dosage: 3 G
     Route: 065
  198. ATROVENT [Concomitant]
     Active Substance: IPRATROPIUM BROMIDE
     Indication: PRODUCT USED FOR UNKNOWN INDICATION
     Dosage: 1 DF, PRN
     Route: 065
  199. TAZOCIN [Concomitant]
     Active Substance: PIPERACILLIN SODIUM\TAZOBACTAM SODIUM
     Dosage: 4.5 MG, QID
     Route: 042
     Dates: start: 20061004, end: 20061009

REACTIONS (1)
  - Toxic epidermal necrolysis [Unknown]

NARRATIVE: CASE EVENT DATE: 2006
